FAERS Safety Report 6504425-X (Version None)
Quarter: 2009Q4

REPORT INFORMATION
  Report Type: 
  Country: None (occurrence: None)
  Receive Date: 20091214
  Receipt Date: 20091118
  Transmission Date: 20100525
  Serious: Yes (Death, Hospitalization)
  Sender: FDA-Public Use
  Company Number: WAES 0904USA01068

PATIENT
  Age: 71 Year
  Sex: Male

DRUGS (15)
  1. PRINIVIL [Suspect]
     Indication: HYPERTENSION
     Dosage: 20 MG/DAILY
     Route: 048
     Dates: start: 20090110
  2. FOSINOPRIL SODIUM [Suspect]
  3. ASPIRIN [Concomitant]
  4. DIPYRONE TAB [Concomitant]
  5. TRAMADOL HCL [Concomitant]
  6. ALLOPURINOL [Concomitant]
  7. AMLODIPINE [Concomitant]
  8. AMOXICILLIN AND CLAVULANATE POTASSIUM [Concomitant]
  9. ASPIRIN [Concomitant]
  10. BISOPROLOL FUMARATE [Concomitant]
  11. CEFUROXIME SODIUM [Concomitant]
  12. METOPROLOL TARTRATE [Concomitant]
  13. POTASSIUM (UNSPECIFIED) [Concomitant]
  14. TORSEMIDE [Concomitant]
  15. XIPAMIDE [Suspect]

REACTIONS (17)
  - ABDOMINAL PAIN UPPER [None]
  - AZOTAEMIA [None]
  - BUNDLE BRANCH BLOCK LEFT [None]
  - CARDIAC ARREST [None]
  - DIALYSIS [None]
  - LEFT VENTRICULAR FAILURE [None]
  - ORTHOSTATIC HYPOTENSION [None]
  - PLEURAL EFFUSION [None]
  - PNEUMONIA [None]
  - PULMONARY CONGESTION [None]
  - PULMONARY OEDEMA [None]
  - RENAL DISORDER [None]
  - SUDDEN DEATH [None]
  - SYNCOPE [None]
  - THROMBOSIS [None]
  - TREATMENT FAILURE [None]
  - VOMITING [None]
